FAERS Safety Report 21860239 (Version 1)
Quarter: 2023Q1

REPORT INFORMATION
  Report Type: Spontaneous
  Country: US (occurrence: US)
  Receive Date: 20230113
  Receipt Date: 20230113
  Transmission Date: 20230418
  Serious: Yes (Hospitalization)
  Sender: FDA-Public Use
  Company Number: US-Fresenius Medical Care Renal Therapies Group-FMC-2301-000029

PATIENT
  Age: 83 Year
  Sex: Male
  Weight: 103 kg

DRUGS (3)
  1. DELFLEX WITH DEXTROSE 1.5% LOW MAGNESIUM LOW CALCIUM [Suspect]
     Active Substance: CALCIUM CHLORIDE\DEXTROSE\MAGNESIUM CHLORIDE\SODIUM CHLORIDE\SODIUM LACTATE
     Indication: End stage renal disease
     Dosage: EXCHANGES = 8, FILL VOLUME = 2900 ML, DWELL TIME = 1.0-HOUR, LAST FILL = 1500 ML, DAYTIME DWELL = N/
     Route: 033
  2. DELFLEX WITH DEXTROSE 2.5% LOW MAGNESIUM LOW CALCIUM [Suspect]
     Active Substance: CALCIUM CHLORIDE\DEXTROSE\MAGNESIUM CHLORIDE\SODIUM CHLORIDE\SODIUM LACTATE
     Indication: Peritonitis
     Dosage: EXCHANGES = 8, FILL VOLUME = 2900 ML, DWELL TIME = 1.0-HOUR, LAST FILL = 1500 ML, DAYTIME DWELL = N/
     Route: 033
  3. DELFLEX WITH DEXTROSE 4.25% LOW MAGNESIUM LOW CALCIUM [Suspect]
     Active Substance: CALCIUM CHLORIDE\DEXTROSE\MAGNESIUM CHLORIDE\SODIUM CHLORIDE\SODIUM LACTATE
     Indication: Peritonitis
     Dosage: EXCHANGES = 8, FILL VOLUME = 2900 ML, DWELL TIME = 1.0-HOUR, LAST FILL = 1500 ML, DAYTIME DWELL = N/
     Route: 033

REACTIONS (1)
  - Peritonitis [Recovering/Resolving]

NARRATIVE: CASE EVENT DATE: 20221229
